FAERS Safety Report 10104722 (Version 2)
Quarter: 2014Q2

REPORT INFORMATION
  Report Type: Other
  Country: None (occurrence: US)
  Receive Date: 20140424
  Receipt Date: 20140625
  Transmission Date: 20141212
  Serious: Yes (Hospitalization, Other)
  Sender: FDA-Public Use
  Company Number: US-GSKPPD-2014GSK002751

PATIENT
  Age: 76 Year
  Sex: Male

DRUGS (6)
  1. AVANDIA [Suspect]
     Indication: DIABETES MELLITUS
     Dosage: AVANDIA WAS NOT LISTED AMONG THE PATIENT^S DISCHARGE RECORDS.
     Route: 048
  2. ASPIRIN [Concomitant]
     Route: 048
  3. CATAPRES [Concomitant]
     Route: 062
  4. LABETALOL [Concomitant]
     Route: 048
  5. PRAVASTATIN [Concomitant]
     Route: 048
  6. LISINOPRIL [Concomitant]
     Route: 048

REACTIONS (1)
  - Hypertensive encephalopathy [Not Recovered/Not Resolved]
